FAERS Safety Report 10172529 (Version 1)
Quarter: 2014Q2

REPORT INFORMATION
  Report Type: Spontaneous
  Country: US (occurrence: US)
  Receive Date: 20140515
  Receipt Date: 20140515
  Transmission Date: 20141212
  Serious: No
  Sender: FDA-Public Use
  Company Number: US-009507513-1405USA004598

PATIENT
  Age: 80 Year
  Sex: Male

DRUGS (2)
  1. SINEMET [Suspect]
     Route: 048
  2. NEUPRO [Concomitant]
     Dosage: 2 MG, UNK

REACTIONS (1)
  - Hallucination [Unknown]
